FAERS Safety Report 4538587-0 (Version None)
Quarter: 2004Q4

REPORT INFORMATION
  Report Type: 
  Country: None (occurrence: None)
  Receive Date: 20041222
  Receipt Date: 20041209
  Transmission Date: 20050328
  Serious: Yes (Hospitalization)
  Sender: FDA-Public Use
  Company Number: HQWYE876209DEC04

PATIENT
  Age: 41 Year
  Sex: Female

DRUGS (5)
  1. EUPANTOL (PANTOPRAZOLE , DELAYED RELEASE) [Suspect]
     Dosage: SOME DOSAGE FORM SOME TIME (S), ORAL
     Route: 048
     Dates: start: 20040801, end: 20040906
  2. ALTIM (CORTIVAZOL, ) [Suspect]
     Dosage: SOME DOSAGE FORM SOME TIME (S)
     Route: 008
     Dates: start: 20040830, end: 20040830
  3. CELESTONE [Suspect]
     Dosage: SOME DOSAGE FORM SOME TIME (S), ORAL
     Route: 048
     Dates: start: 20040801, end: 20040830
  4. LAMALINE (BELLADONNA EXTRACT/CAFFEINE/OPIUM TINCTURE/PARACETAMOL, ) [Suspect]
     Dosage: SOME DOSAGE FORM SOME TIME (S), RECTAL
     Route: 054
     Dates: start: 20040801, end: 20040815
  5. VOLTARENE (CICLOFENAC SODIUM, ) [Suspect]
     Dosage: SOME DOSAGE FORM SOME TIME (S), ORAL
     Route: 048
     Dates: start: 20040801, end: 20040906

REACTIONS (3)
  - INJECTION SITE PRURITUS [None]
  - STEVENS-JOHNSON SYNDROME [None]
  - TOXIC SKIN ERUPTION [None]
